FAERS Safety Report 9165826 (Version 3)
Quarter: 2015Q1

REPORT INFORMATION
  Report Type: Spontaneous
  Country: BE (occurrence: BE)
  Receive Date: 20130315
  Receipt Date: 20150226
  Transmission Date: 20150721
  Serious: Yes (Death, Hospitalization, Other)
  Sender: FDA-Public Use
  Company Number: PHHY2013BE024937

PATIENT
  Age: 38 Year
  Sex: Female

DRUGS (2)
  1. VENLAFAXINE [Suspect]
     Active Substance: VENLAFAXINE HYDROCHLORIDE
     Indication: PRODUCT USED FOR UNKNOWN INDICATION
     Dosage: 4200 MG, UNK
     Route: 065
  2. ETHANOL [Concomitant]
     Active Substance: ALCOHOL
     Indication: PRODUCT USED FOR UNKNOWN INDICATION
     Route: 065

REACTIONS (16)
  - Pneumococcal sepsis [Unknown]
  - Serotonin syndrome [Unknown]
  - Ventricular tachycardia [Unknown]
  - Clonus [Unknown]
  - Hypotension [Unknown]
  - Acute left ventricular failure [Fatal]
  - Rhabdomyolysis [Unknown]
  - Acute kidney injury [Unknown]
  - Acute respiratory distress syndrome [Unknown]
  - Liver injury [Unknown]
  - Atrial fibrillation [Unknown]
  - Hypoxia [Fatal]
  - Pneumonia [Unknown]
  - Arrhythmia [Unknown]
  - Cell death [Unknown]
  - Overdose [Unknown]
